FAERS Safety Report 18149698 (Version 1)
Quarter: 2020Q3

REPORT INFORMATION
  Report Type: Spontaneous
  Country: HK (occurrence: HK)
  Receive Date: 20200814
  Receipt Date: 20200814
  Transmission Date: 20201103
  Serious: Yes (Other)
  Sender: FDA-Public Use
  Company Number: HK-LUPIN PHARMACEUTICALS INC.-2020-04593

PATIENT
  Age: 35 Month
  Sex: Male
  Weight: 12.3 kg

DRUGS (11)
  1. RIFAMPIN. [Suspect]
     Active Substance: RIFAMPIN
     Dosage: 110 MILLIGRAM (15 MG/KG/DAY; ADDED ON DAY 12 OF TREATMENT (2ND TIME PRESENTATION))
     Route: 048
     Dates: start: 2017
  2. CIPROFLOXACIN. [Concomitant]
     Active Substance: CIPROFLOXACIN
     Indication: BRUCELLOSIS
     Dosage: 140 MILLIGRAM, TID (10 MG/KG/DOSE; AT THE TIME OF SECOND PRESENTATION ADDED ON DAY 19 OF TREATMENT)
     Route: 065
     Dates: start: 2017
  3. CEFOTAXIME [Concomitant]
     Active Substance: CEFOTAXIME SODIUM
     Indication: EVIDENCE BASED TREATMENT
     Dosage: UNK (EMPIRICAL TREATMENT AT THE TIME OF 2ND PRESENTATION)
     Route: 042
     Dates: start: 2017
  4. GENTAMICIN. [Concomitant]
     Active Substance: GENTAMICIN
     Indication: BRUCELLOSIS
     Dosage: 60 MILLIGRAM, QD (5 MG/KG/DOSE; AT THE TIME OF 1ST PRESENTATION FOR 10 DAYS)
     Route: 042
     Dates: start: 2017
  5. AMIKACIN. [Concomitant]
     Active Substance: AMIKACIN
     Indication: EVIDENCE BASED TREATMENT
     Dosage: UNK
     Route: 065
     Dates: start: 2017
  6. SULFAMETHOXAZOLE AND TRIMETHOPRIM [Suspect]
     Active Substance: SULFAMETHOXAZOLE\TRIMETHOPRIM
     Dosage: 360 MILLIGRAM, BID (AT THE TIME OF 2ND PRESENTATION)
     Route: 048
     Dates: start: 2017
  7. RIFAMPIN. [Suspect]
     Active Substance: RIFAMPIN
     Indication: BRUCELLOSIS
     Dosage: 100 MILLIGRAM, BID (16 MG/KG/DAY WITH COTRIMOXAZOLE AT THE TIME OF 1ST PRESENTATION FOR 5 WEEKS)
     Route: 048
     Dates: start: 2017
  8. RIFAMPIN. [Suspect]
     Active Substance: RIFAMPIN
     Dosage: 140 MILLIGRAM (AT THE TIME OF 2ND PRESENTATION)
     Route: 048
     Dates: start: 2017
  9. GENTAMICIN. [Concomitant]
     Active Substance: GENTAMICIN
     Dosage: 100 MILLIGRAM, QD (AT THE TIME OF 2ND PRESENTATION; 7 MG/KG/DOSE)
     Route: 042
     Dates: start: 2017
  10. SULFAMETHOXAZOLE AND TRIMETHOPRIM [Suspect]
     Active Substance: SULFAMETHOXAZOLE\TRIMETHOPRIM
     Indication: BRUCELLOSIS
     Dosage: 360 MILLIGRAM, BID (TRIMETHOPRIM 10 MG/KG/DAY AND SULFAMETHOXAZOLE 50 MG/KG/DAY; AT THE TIME OF 1ST
     Route: 048
     Dates: start: 2017
  11. MEROPENEM. [Concomitant]
     Active Substance: MEROPENEM
     Indication: EVIDENCE BASED TREATMENT
     Dosage: UNK (EMPIRICAL TREATMENT AT THE TIME OF 2ND PRESENTATION; WITH AMIKACIN)
     Route: 042
     Dates: start: 2017

REACTIONS (4)
  - Rash maculo-papular [Unknown]
  - Type IV hypersensitivity reaction [Unknown]
  - Neutrophil count decreased [Recovered/Resolved]
  - Renal impairment [Recovered/Resolved]

NARRATIVE: CASE EVENT DATE: 2017
